FAERS Safety Report 19031952 (Version 2)
Quarter: 2021Q1

REPORT INFORMATION
  Report Type: Spontaneous
  Country: US (occurrence: US)
  Receive Date: 20210319
  Receipt Date: 20210330
  Transmission Date: 20210420
  Serious: Yes (Hospitalization, Other)
  Sender: FDA-Public Use
  Company Number: US-ASTRAZENECA-2021A147283

PATIENT
  Age: 59 Year
  Sex: Male
  Weight: 101.6 kg

DRUGS (31)
  1. FARXIGA [Suspect]
     Active Substance: DAPAGLIFLOZIN PROPANEDIOL
     Indication: WEIGHT DECREASED
     Dosage: 5.0MG UNKNOWN
     Route: 048
     Dates: start: 20180213
  2. LISINOPRIL. [Concomitant]
     Active Substance: LISINOPRIL
  3. ZOFRAN [Concomitant]
     Active Substance: ONDANSETRON HYDROCHLORIDE
  4. ASPIRIN. [Concomitant]
     Active Substance: ASPIRIN
  5. PROPOFOL. [Concomitant]
     Active Substance: PROPOFOL
  6. LIPITOR [Concomitant]
     Active Substance: ATORVASTATIN CALCIUM
  7. NYSTATIN. [Concomitant]
     Active Substance: NYSTATIN
  8. PREDNISONE. [Concomitant]
     Active Substance: PREDNISONE
     Dates: start: 20180116
  9. AMPICILLIN [Concomitant]
     Active Substance: AMPICILLIN
  10. FARXIGA [Suspect]
     Active Substance: DAPAGLIFLOZIN PROPANEDIOL
     Indication: WEIGHT DECREASED
     Route: 048
     Dates: start: 20180213
  11. FARXIGA [Suspect]
     Active Substance: DAPAGLIFLOZIN PROPANEDIOL
     Indication: TYPE 2 DIABETES MELLITUS
     Dosage: 5.0MG UNKNOWN
     Route: 048
     Dates: start: 20180213
  12. FARXIGA [Suspect]
     Active Substance: DAPAGLIFLOZIN PROPANEDIOL
     Indication: TYPE 2 DIABETES MELLITUS
     Dosage: 5.0MG UNKNOWN
     Route: 048
     Dates: start: 20180607
  13. FARXIGA [Suspect]
     Active Substance: DAPAGLIFLOZIN PROPANEDIOL
     Indication: BLOOD PRESSURE DECREASED
     Dosage: 5.0MG UNKNOWN
     Route: 048
     Dates: start: 20180607
  14. FAMOTIDINE. [Concomitant]
     Active Substance: FAMOTIDINE
  15. LIDOCAINE HCL [Concomitant]
     Active Substance: LIDOCAINE HYDROCHLORIDE
  16. HYDROMORPHONE [Concomitant]
     Active Substance: HYDROMORPHONE
     Dates: start: 20180615
  17. ALPRAZOLAM. [Concomitant]
     Active Substance: ALPRAZOLAM
     Dates: start: 20180620
  18. LORAZEPAM. [Concomitant]
     Active Substance: LORAZEPAM
  19. FARXIGA [Suspect]
     Active Substance: DAPAGLIFLOZIN PROPANEDIOL
     Indication: BLOOD PRESSURE DECREASED
     Dosage: 5.0MG UNKNOWN
     Route: 048
     Dates: start: 20180213
  20. FARXIGA [Suspect]
     Active Substance: DAPAGLIFLOZIN PROPANEDIOL
     Indication: WEIGHT DECREASED
     Dosage: 5.0MG UNKNOWN
     Route: 048
     Dates: start: 20180607
  21. PERCOCET [Concomitant]
     Active Substance: ACETAMINOPHEN\OXYCODONE HYDROCHLORIDE
  22. XANAX [Concomitant]
     Active Substance: ALPRAZOLAM
  23. AZITHROMYCIN ANHYDROUS. [Concomitant]
     Active Substance: AZITHROMYCIN ANHYDROUS
  24. AMOXICILLIN. [Concomitant]
     Active Substance: AMOXICILLIN
  25. BISACODYL. [Concomitant]
     Active Substance: BISACODYL
  26. FARXIGA [Suspect]
     Active Substance: DAPAGLIFLOZIN PROPANEDIOL
     Indication: TYPE 2 DIABETES MELLITUS
     Route: 048
     Dates: start: 20180213
  27. LIPITOR [Concomitant]
     Active Substance: ATORVASTATIN CALCIUM
  28. BUDESONIDE. [Concomitant]
     Active Substance: BUDESONIDE
     Dates: start: 20180116
  29. ZOLPIDEM [Concomitant]
     Active Substance: ZOLPIDEM TARTRATE
  30. FARXIGA [Suspect]
     Active Substance: DAPAGLIFLOZIN PROPANEDIOL
     Indication: BLOOD PRESSURE DECREASED
     Route: 048
     Dates: start: 20180213
  31. METFORMIN HCL [Concomitant]
     Active Substance: METFORMIN HYDROCHLORIDE

REACTIONS (6)
  - Scrotal abscess [Unknown]
  - Abscess [Unknown]
  - Groin abscess [Unknown]
  - Scrotal cellulitis [Unknown]
  - Fournier^s gangrene [Unknown]
  - Perirectal abscess [Unknown]

NARRATIVE: CASE EVENT DATE: 2018
